FAERS Safety Report 6767324-4 (Version None)
Quarter: 2010Q2

REPORT INFORMATION
  Report Type: 
  Country: None (occurrence: None)
  Receive Date: 20100614
  Receipt Date: 20100604
  Transmission Date: 20101027
  Serious: Yes (Hospitalization)
  Sender: FDA-Public Use
  Company Number: GB-ASTRAZENECA-2010SE26145

PATIENT

DRUGS (2)
  1. ENTOCORT CR [Suspect]
     Route: 048
  2. ENTOCORT CR [Suspect]
     Route: 048

REACTIONS (5)
  - DRUG DOSE OMISSION [None]
  - GASTROINTESTINAL TUBE INSERTION [None]
  - NEOPLASM [None]
  - NEOPLASM MALIGNANT [None]
  - ORAL NEOPLASM [None]
